FAERS Safety Report 5541916-2 (Version None)
Quarter: 2007Q4

REPORT INFORMATION
  Report Type: 
  Country: None (occurrence: None)
  Receive Date: 20071210
  Receipt Date: 20071129
  Transmission Date: 20080405
  Serious: Yes (Hospitalization)
  Sender: FDA-Public Use
  Company Number: JP-ROCHE-534832

PATIENT
  Age: 69 Year
  Sex: Female

DRUGS (2)
  1. COPEGUS [Suspect]
     Dosage: DIVIDED INTO TWO DOSES
     Route: 048
     Dates: start: 20070903, end: 20071106
  2. PEGASYS [Suspect]
     Route: 058
     Dates: start: 20070703, end: 20071030

REACTIONS (1)
  - RETINAL DETACHMENT [None]
